FAERS Safety Report 6772598-X (Version None)
Quarter: 2010Q2

REPORT INFORMATION
  Report Type: 
  Country: None (occurrence: None)
  Receive Date: 20100616
  Receipt Date: 20090813
  Transmission Date: 20101027
  Serious: No
  Sender: FDA-Public Use
  Company Number: US-ASTRAZENECA-2009SE08006

PATIENT
  Sex: Female

DRUGS (1)
  1. PULMICORT FLEXHALER [Suspect]
     Dosage: TOTAL DAILY DOSAGE 180MG
     Route: 055
     Dates: start: 20090805

REACTIONS (5)
  - ANXIETY [None]
  - FEELING ABNORMAL [None]
  - TONGUE DISCOLOURATION [None]
  - TONGUE DISORDER [None]
  - TOOTHACHE [None]
